FAERS Safety Report 23357481 (Version 1)
Quarter: 2023Q4

REPORT INFORMATION
  Report Type: Spontaneous
  Country: US (occurrence: None)
  Receive Date: 20231231
  Receipt Date: 20231231
  Transmission Date: 20240109
  Serious: Yes (unspecified)
  Sender: FDA-Public Use
  Company Number: None

PATIENT
  Age: 34 Year
  Sex: Male
  Weight: 83.25 kg

DRUGS (7)
  1. TIANEPTINE [Suspect]
     Active Substance: TIANEPTINE
     Indication: Anxiety
     Dosage: FREQUENCY : DAILY;?
     Route: 048
  2. TIANEPTINE [Suspect]
     Active Substance: TIANEPTINE
     Indication: Depression
  3. TIANEPTINE [Suspect]
     Active Substance: TIANEPTINE
     Indication: Affective disorder
  4. PEGASYS [Suspect]
     Active Substance: PEGINTERFERON ALFA-2A
  5. TIANEPTINE [Suspect]
     Active Substance: TIANEPTINE
  6. VITAMIN C [Concomitant]
     Active Substance: ASCORBIC ACID
  7. VITAMINS [Concomitant]
     Active Substance: VITAMINS

REACTIONS (3)
  - Drug dependence [None]
  - Mental disorder [None]
  - Product complaint [None]

NARRATIVE: CASE EVENT DATE: 20221109
